FAERS Safety Report 9516817 (Version 1)
Quarter: 2013Q2

REPORT INFORMATION
  Report Type: Spontaneous
  Country: FR (occurrence: None)
  Receive Date: 20130624
  Receipt Date: 20130624
  Transmission Date: 20140414
  Serious: Yes (Other)
  Sender: FDA-Public Use
  Company Number: 221813

PATIENT
  Sex: Female

DRUGS (1)
  1. INNOHEP (TINZAPARIN SODIUM) [Suspect]
     Indication: ACCIDENT
     Dates: start: 20130528, end: 20130528

REACTIONS (3)
  - Injury associated with device [None]
  - Occupational exposure to product [None]
  - Exposure during pregnancy [None]
